FAERS Safety Report 8442965-7 (Version None)
Quarter: 2012Q2

REPORT INFORMATION
  Report Type: 
  Country: None (occurrence: None)
  Receive Date: 20120615
  Receipt Date: 20120605
  Transmission Date: 20120825
  Serious: Yes (Hospitalization)
  Sender: FDA-Public Use
  Company Number: US-ELI_LILLY_AND_COMPANY-US201201003945

PATIENT
  Sex: Female
  Weight: 50.34 kg

DRUGS (19)
  1. LEVOTHYROXINE SODIUM [Concomitant]
     Dosage: UNK, QD
  2. CELEBREX [Concomitant]
     Dosage: 200 MG, QD
  3. SIMVASTATIN [Concomitant]
  4. VESICARE [Concomitant]
     Dosage: UNK, EACH MORNING
  5. MULTI-VITAMINS [Concomitant]
     Dosage: UNK, EACH MORNING
  6. CALCIUM CARBONATE [Concomitant]
     Dosage: 600 MG, UNKNOWN
  7. PRINIVIL [Concomitant]
     Dosage: UNK
  8. FUROSEMIDE [Concomitant]
     Dosage: UNK, QD
  9. FORTEO [Suspect]
     Dosage: 20 UG, QD
     Route: 065
  10. SEROQUEL [Concomitant]
     Dosage: UNK, EACH EVENING
  11. LIPITOR [Concomitant]
     Dosage: UNK
  12. FORTEO [Suspect]
     Dosage: 20 UG, QD
     Route: 065
  13. HYDROCODONE [Concomitant]
     Indication: PAIN
     Dosage: UNK, PRN
  14. CITRACAL [Concomitant]
     Dosage: UNK, BID
  15. FORTEO [Suspect]
     Dosage: 20 UG, QD
     Route: 065
  16. OMEPRAZOLE [Concomitant]
     Dosage: UNK, QD
  17. FORTEO [Suspect]
     Indication: OSTEOPOROSIS
     Dosage: 20 UG, QD
     Route: 065
     Dates: start: 20110101
  18. FORTEO [Suspect]
     Dosage: 20 UG, QD
     Route: 065
  19. METOPROLOL TARTRATE [Concomitant]
     Dosage: UNK, BID

REACTIONS (11)
  - INCORRECT STORAGE OF DRUG [None]
  - OSTEOARTHRITIS [None]
  - MALAISE [None]
  - SURGERY [None]
  - CONSTIPATION [None]
  - DRUG DOSE OMISSION [None]
  - FATIGUE [None]
  - PAIN IN EXTREMITY [None]
  - DRY MOUTH [None]
  - ARTHRALGIA [None]
  - INAPPROPRIATE SCHEDULE OF DRUG ADMINISTRATION [None]
